FAERS Safety Report 15801742 (Version 1)
Quarter: 2019Q1

REPORT INFORMATION
  Report Type: Spontaneous
  Country: US (occurrence: US)
  Receive Date: 20190109
  Receipt Date: 20190109
  Transmission Date: 20190417
  Serious: No
  Sender: FDA-Public Use
  Company Number: US-PFIZER INC-2019010314

PATIENT
  Age: 45 Year
  Sex: Female

DRUGS (2)
  1. SILVER SULFADIAZENE [Suspect]
     Active Substance: SILVER SULFADIAZINE
     Dosage: UNK
  2. SUCCINYLCHOLINE [SUXAMETHONIUM] [Suspect]
     Active Substance: SUCCINYLCHOLINE
     Dosage: UNK

REACTIONS (1)
  - Drug hypersensitivity [Unknown]
